FAERS Safety Report 8920779 (Version 1)
Quarter: 2012Q4

REPORT INFORMATION
  Report Type: Report from Study
  Country: CA (occurrence: CA)
  Receive Date: 20121121
  Receipt Date: 20121121
  Transmission Date: 20130627
  Serious: Yes (Death, Hospitalization, Other)
  Sender: FDA-Public Use
  Company Number: CA-ROCHE-1096593

PATIENT
  Age: 64 None
  Sex: Male

DRUGS (9)
  1. VEMURAFENIB [Suspect]
     Indication: METASTATIC MALIGNANT MELANOMA
     Route: 048
     Dates: start: 201206, end: 2012
  2. VEMURAFENIB [Suspect]
     Route: 048
     Dates: start: 20120728
  3. ALLOPURINOL [Concomitant]
  4. VITAMIN D + E [Concomitant]
  5. BABY ASPIRIN [Concomitant]
  6. MULTIVITAMINS E,C,K [Concomitant]
  7. OXYCOCET [Concomitant]
  8. DEXAMETHASONE [Concomitant]
  9. RANITIDINE [Concomitant]

REACTIONS (11)
  - Death [Fatal]
  - Fall [Unknown]
  - Squamous cell carcinoma [Not Recovered/Not Resolved]
  - Dizziness [Not Recovered/Not Resolved]
  - Mobility decreased [Not Recovered/Not Resolved]
  - Dyspnoea [Recovered/Resolved]
  - Disease progression [Not Recovered/Not Resolved]
  - Gait disturbance [Not Recovered/Not Resolved]
  - Lacrimation increased [Not Recovered/Not Resolved]
  - Acne [Not Recovered/Not Resolved]
  - Rash [Recovering/Resolving]
